FAERS Safety Report 12824411 (Version 1)
Quarter: 2016Q4

REPORT INFORMATION
  Report Type: Spontaneous
  Country: MX (occurrence: MX)
  Receive Date: 20161007
  Receipt Date: 20161007
  Transmission Date: 20170207
  Serious: Yes (Death, Hospitalization)
  Sender: FDA-Public Use
  Company Number: MX-PERRIGO-16MX020615

PATIENT
  Age: 81 Year
  Sex: Male

DRUGS (1)
  1. ACTIQUIM [Suspect]
     Active Substance: NAPROXEN
     Indication: ANALGESIC THERAPY
     Dosage: 250 MG, BID
     Route: 048
     Dates: start: 2013, end: 2013

REACTIONS (4)
  - Multiple organ dysfunction syndrome [Fatal]
  - Hyperglycaemia [Unknown]
  - Sepsis [Unknown]
  - Toxic epidermal necrolysis [Fatal]

NARRATIVE: CASE EVENT DATE: 2013
